FAERS Safety Report 23390616 (Version 1)
Quarter: 2024Q1

REPORT INFORMATION
  Report Type: Spontaneous
  Country: DK (occurrence: DK)
  Receive Date: 20240111
  Receipt Date: 20240111
  Transmission Date: 20240410
  Serious: Yes (Hospitalization)
  Sender: FDA-Public Use
  Company Number: None

PATIENT
  Age: 58 Year
  Sex: Male

DRUGS (5)
  1. HYRIMOZ [Suspect]
     Active Substance: ADALIMUMAB-ADAZ
     Indication: Psoriasis
     Dosage: 40 MG
     Route: 058
     Dates: start: 20230210, end: 20230829
  2. ACITRETIN ORIFARM [Concomitant]
     Indication: Psoriasis
     Dosage: UNK
     Route: 065
     Dates: start: 20221223
  3. DIAMOX SEQUELS [Concomitant]
     Active Substance: ACETAZOLAMIDE
     Indication: Glaucoma
     Dosage: UNK
     Route: 065
     Dates: start: 20230301
  4. SPERSADEX COMP. [Concomitant]
     Indication: Post procedural inflammation
     Dosage: UNK
     Route: 065
     Dates: start: 20230301
  5. VOLTABAK [Concomitant]
     Indication: Post procedural inflammation
     Route: 065
     Dates: start: 20230301

REACTIONS (4)
  - Cough [Unknown]
  - Wheezing [Unknown]
  - Neoplasm [Not Recovered/Not Resolved]
  - Headache [Unknown]

NARRATIVE: CASE EVENT DATE: 20230201
